FAERS Safety Report 15294886 (Version 1)
Quarter: 2018Q3

REPORT INFORMATION
  Report Type: Spontaneous
  Country: US (occurrence: US)
  Receive Date: 20180820
  Receipt Date: 20180820
  Transmission Date: 20181010
  Serious: No
  Sender: FDA-Public Use
  Company Number: US-TEVA-2018-US-944249

PATIENT
  Sex: Female

DRUGS (2)
  1. CLONAZEPAM. [Suspect]
     Active Substance: CLONAZEPAM
     Indication: PANIC ATTACK
     Dates: start: 2008
  2. CLONAZEPAM. [Suspect]
     Active Substance: CLONAZEPAM
     Indication: HALLUCINATION
     Dates: start: 2008

REACTIONS (3)
  - Insomnia [Unknown]
  - Hallucination [Unknown]
  - Peripheral swelling [Unknown]

NARRATIVE: CASE EVENT DATE: 2016
